FAERS Safety Report 6656046-6 (Version None)
Quarter: 2010Q1

REPORT INFORMATION
  Report Type: 
  Country: None (occurrence: None)
  Receive Date: 20100317
  Receipt Date: 20091223
  Transmission Date: 20100710
  Serious: No
  Sender: FDA-Public Use
  Company Number: DSA_42247_2009

PATIENT
  Sex: Female

DRUGS (1)
  1. XENAZINE [Suspect]
     Dosage: 12.5 MG QD ORAL
     Route: 048
     Dates: start: 20091201, end: 20091201

REACTIONS (2)
  - CRYING [None]
  - FATIGUE [None]
